FAERS Safety Report 24827807 (Version 3)
Quarter: 2025Q1

REPORT INFORMATION
  Report Type: Spontaneous
  Country: US (occurrence: US)
  Receive Date: 20250109
  Receipt Date: 20250303
  Transmission Date: 20250408
  Serious: No
  Sender: PFIZER
  Company Number: US-PFIZER INC-202500004016

PATIENT
  Age: 8 Year
  Sex: Female

DRUGS (3)
  1. GENOTROPIN [Suspect]
     Active Substance: SOMATROPIN
     Indication: Hypopituitarism
     Dosage: 0.4 MG, DAILY (EVERY NIGHT AT BED TIME)
     Route: 058
     Dates: start: 202411
  2. LACTULOSE [Concomitant]
     Active Substance: LACTULOSE
  3. CYPROHEPTADINE [Concomitant]
     Active Substance: CYPROHEPTADINE

REACTIONS (2)
  - Device failure [Unknown]
  - Device leakage [Unknown]
